FAERS Safety Report 15103657 (Version 1)
Quarter: 2018Q3

REPORT INFORMATION
  Report Type: Spontaneous
  Country: US (occurrence: US)
  Receive Date: 20180703
  Receipt Date: 20180703
  Transmission Date: 20181010
  Serious: Yes (Hospitalization)
  Sender: FDA-Public Use
  Company Number: US-PROCTER_AND_GAMBLE-GS18076825

PATIENT
  Age: 56 Year
  Sex: Female

DRUGS (3)
  1. DULOXETINE. [Concomitant]
     Active Substance: DULOXETINE
     Indication: PRODUCT USED FOR UNKNOWN INDICATION
     Dosage: 20 DOSAGE FORM, DAILY
     Route: 048
  2. THYROID THERAPY [Concomitant]
     Active Substance: UNSPECIFIED INGREDIENT
  3. P+GUNKNONPGCALCARBONATENPGZCAC# [Suspect]
     Active Substance: CALCIUM CARBONATE
     Dosage: NEARLY 20 PER DAY
     Route: 048

REACTIONS (30)
  - Blood calcium increased [Recovered/Resolved]
  - Blood phosphorus increased [Unknown]
  - Blood potassium decreased [Unknown]
  - Blood sodium decreased [None]
  - Computerised tomogram abdomen abnormal [Unknown]
  - Confusional state [Unknown]
  - Biopsy oesophagus abnormal [Unknown]
  - Overdose [Unknown]
  - Oesophagitis [Unknown]
  - Blood urea increased [Unknown]
  - Vitamin D decreased [Unknown]
  - Urinary casts present [Unknown]
  - Nausea [Unknown]
  - Light chain analysis decreased [Unknown]
  - Specific gravity urine decreased [Unknown]
  - Vomiting [Unknown]
  - Oesophageal disorder [Unknown]
  - Heart rate increased [Unknown]
  - Blood creatinine increased [Recovered/Resolved]
  - Urinary sediment present [Unknown]
  - Haemoglobin decreased [Unknown]
  - Urine leukocyte esterase positive [Unknown]
  - White blood cells urine positive [Unknown]
  - Milk-alkali syndrome [Recovered/Resolved]
  - Metabolic alkalosis [Recovered/Resolved]
  - Hypercalcaemia [Recovered/Resolved]
  - Abdominal pain upper [Unknown]
  - Blood bicarbonate increased [Unknown]
  - Abdominal tenderness [Unknown]
  - Lymphadenopathy [Unknown]
